FAERS Safety Report 5934750-2 (Version None)
Quarter: 2008Q4

REPORT INFORMATION
  Report Type: 
  Country: None (occurrence: None)
  Receive Date: 20081029
  Receipt Date: 20081021
  Transmission Date: 20090506
  Serious: Yes (Other)
  Sender: FDA-Public Use
  Company Number: US-B.I. PHARMACEUTICALS,INC./RIDGEFIELD-2004-BP-00088BP

PATIENT
  Sex: Male
  Weight: 80 kg

DRUGS (2)
  1. TIPRANAVIR / RITONAVIR CAPSULES [Suspect]
     Indication: HIV INFECTION
     Route: 048
     Dates: start: 20030730, end: 20060926
  2. TIPRANAVIR/RITONAVIR (POSTTREATMENT) [Suspect]
     Indication: HIV INFECTION
     Route: 048
     Dates: start: 20030730, end: 20060926

REACTIONS (2)
  - PROSTATE CANCER [None]
  - PROSTATE CANCER RECURRENT [None]
